FAERS Safety Report 4927900-8 (Version None)
Quarter: 2006Q1

REPORT INFORMATION
  Report Type: 
  Country: None (occurrence: None)
  Receive Date: 20060222
  Receipt Date: 20060208
  Transmission Date: 20060701
  Serious: Yes (Hospitalization, Other)
  Sender: FDA-Public Use
  Company Number: 200610744BWH

PATIENT
  Age: 53 Year
  Sex: Male
  Weight: 69.4003 kg

DRUGS (20)
  1. SORAFENIB [Suspect]
     Indication: METASTATIC RENAL CELL CARCINOMA
     Dosage: 200 MG, BID, ORAL
     Route: 048
     Dates: start: 20060110, end: 20060131
  2. CELEBREX [Concomitant]
  3. DOXEPIN [Concomitant]
  4. NEURONTIN [Concomitant]
  5. MSIR [Concomitant]
  6. MS CONTIN [Concomitant]
  7. COLACE [Concomitant]
  8. KLOR-CON [Concomitant]
  9. ZOMETA [Concomitant]
  10. SLOW-K [Concomitant]
  11. MORPHINE [Concomitant]
  12. AREDIA [Concomitant]
  13. POTASSIUM CHLORIDE [Concomitant]
  14. PHENERGAN [Concomitant]
  15. LOVENOX [Concomitant]
  16. DILAUDID [Concomitant]
  17. LASIX [Concomitant]
  18. MARINOL [Concomitant]
  19. MIRALAX [Concomitant]
  20. PROTONIX [Concomitant]

REACTIONS (16)
  - ACTIVATED PARTIAL THROMBOPLASTIN TIME ABNORMAL [None]
  - ALANINE AMINOTRANSFERASE ABNORMAL [None]
  - ASTHENIA [None]
  - BLOOD CALCIUM ABNORMAL [None]
  - BLOOD CHLORIDE ABNORMAL [None]
  - BLOOD FIBRINOGEN ABNORMAL [None]
  - BLOOD POTASSIUM ABNORMAL [None]
  - BLOOD SODIUM ABNORMAL [None]
  - BLOOD UREA ABNORMAL [None]
  - CALCIUM IONISED ABNORMAL [None]
  - EATING DISORDER [None]
  - HAEMATOCRIT ABNORMAL [None]
  - HAEMOGLOBIN DECREASED [None]
  - PAIN [None]
  - PROTHROMBIN TIME ABNORMAL [None]
  - RETCHING [None]
